FAERS Safety Report 7790088-2 (Version None)
Quarter: 2011Q3

REPORT INFORMATION
  Report Type: 
  Country: None (occurrence: None)
  Receive Date: 20110930
  Receipt Date: 20110505
  Transmission Date: 20111222
  Serious: No
  Sender: FDA-Public Use
  Company Number: US-ASTRAZENECA-2006UW17050

PATIENT
  Age: 66 Year
  Sex: Female
  Weight: 63 kg

DRUGS (1)
  1. ARIMIDEX [Suspect]
     Indication: BREAST CANCER
     Route: 048
     Dates: start: 20050401, end: 20100422

REACTIONS (10)
  - ANXIETY [None]
  - INSOMNIA [None]
  - VITREOUS FLOATERS [None]
  - GASTROOESOPHAGEAL REFLUX DISEASE [None]
  - EYE HAEMORRHAGE [None]
  - ALOPECIA [None]
  - HOT FLUSH [None]
  - NIGHT SWEATS [None]
  - VISUAL IMPAIRMENT [None]
  - HEADACHE [None]
